FAERS Safety Report 24658032 (Version 1)
Quarter: 2024Q4

REPORT INFORMATION
  Report Type: Spontaneous
  Country: US (occurrence: US)
  Receive Date: 20241125
  Receipt Date: 20241125
  Transmission Date: 20250114
  Serious: No
  Sender: AZURITY PHARMACEUTICALS
  Company Number: US-AZURITY PHARMACEUTICALS, INC.-US-2024AZR000425

PATIENT
  Age: 50 Year
  Sex: Male

DRUGS (1)
  1. DEXTROAMPHETAMINE SULFATE [Suspect]
     Active Substance: DEXTROAMPHETAMINE SULFATE
     Indication: Brain injury
     Dosage: 3 DF, QD
     Route: 065

REACTIONS (8)
  - Skin burning sensation [Unknown]
  - Pruritus [Unknown]
  - Erythema [Unknown]
  - Skin irritation [Unknown]
  - Product complaint [Unknown]
  - Skin lesion [Not Recovered/Not Resolved]
  - Product quality issue [Unknown]
  - Product use in unapproved indication [Unknown]
